FAERS Safety Report 4719306-1 (Version None)
Quarter: 2005Q3

REPORT INFORMATION
  Report Type: 
  Country: None (occurrence: None)
  Receive Date: 20050721
  Receipt Date: 20050105
  Transmission Date: 20060218
  Serious: No
  Sender: FDA-Public Use
  Company Number: US-GLAXOSMITHKLINE-A0539473A

PATIENT
  Age: 66 Year
  Sex: Female

DRUGS (4)
  1. MALARONE [Suspect]
     Indication: MALARIA PROPHYLAXIS
     Dosage: 1TAB PER DAY
     Route: 048
     Dates: start: 20041205, end: 20041216
  2. CELEBREX [Concomitant]
  3. ELMIRON [Concomitant]
  4. KLONOPIN [Concomitant]

REACTIONS (7)
  - ABDOMINAL PAIN [None]
  - DECREASED APPETITE [None]
  - INSOMNIA [None]
  - NAUSEA [None]
  - PRURITUS [None]
  - URINARY TRACT INFECTION [None]
  - URTICARIA [None]
